FAERS Safety Report 9475497 (Version 1)
Quarter: 2013Q3

REPORT INFORMATION
  Report Type: Spontaneous
  Country: AU (occurrence: AU)
  Receive Date: 20130826
  Receipt Date: 20130826
  Transmission Date: 20140515
  Serious: Yes (Hospitalization)
  Sender: FDA-Public Use
  Company Number: AU-ROCHE-1265746

PATIENT
  Sex: Female
  Weight: 48 kg

DRUGS (35)
  1. HERCEPTIN [Suspect]
     Indication: BREAST CANCER METASTATIC
     Route: 065
     Dates: start: 20031028
  2. HERCEPTIN [Suspect]
     Route: 065
     Dates: start: 20050518
  3. HERCEPTIN [Suspect]
     Route: 065
     Dates: start: 20070623
  4. HERCEPTIN [Suspect]
     Route: 065
     Dates: start: 20080505
  5. HERCEPTIN [Suspect]
     Route: 065
     Dates: start: 20081201
  6. HERCEPTIN [Suspect]
     Route: 065
     Dates: start: 20101206
  7. HERCEPTIN [Suspect]
     Route: 065
     Dates: start: 20110502
  8. HERCEPTIN [Suspect]
     Route: 065
     Dates: start: 20120109
  9. HERCEPTIN [Suspect]
     Route: 065
     Dates: start: 20120130
  10. HERCEPTIN [Suspect]
     Route: 065
     Dates: start: 20120505
  11. HERCEPTIN [Suspect]
     Route: 065
     Dates: start: 20121008
  12. HERCEPTIN [Suspect]
     Route: 065
     Dates: start: 20130304
  13. XELODA [Suspect]
     Indication: BREAST CANCER METASTATIC
     Route: 065
     Dates: start: 20050914
  14. XELODA [Suspect]
     Route: 065
     Dates: start: 20071108
  15. XELODA [Suspect]
     Route: 065
     Dates: start: 20121229
  16. ANASTROZOLE [Concomitant]
     Indication: BREAST CANCER METASTATIC
     Route: 065
     Dates: start: 20020205
  17. TAMOXIFEN [Concomitant]
     Indication: BREAST CANCER METASTATIC
     Route: 065
     Dates: start: 20030331
  18. TAMOXIFEN [Concomitant]
     Route: 065
     Dates: start: 20070623
  19. TAMOXIFEN [Concomitant]
     Route: 065
     Dates: start: 20090817
  20. DOCETAXEL [Concomitant]
     Indication: BREAST CANCER METASTATIC
     Route: 065
     Dates: start: 20031028
  21. DOCETAXEL [Concomitant]
     Route: 065
     Dates: start: 20070623
  22. DOCETAXEL [Concomitant]
     Route: 065
     Dates: start: 20110502
  23. DOCETAXEL [Concomitant]
     Route: 065
     Dates: start: 20120109
  24. DOCETAXEL [Concomitant]
     Route: 065
     Dates: start: 20121008
  25. EXEMESTANE [Concomitant]
     Indication: BREAST CANCER METASTATIC
     Route: 065
     Dates: start: 20041022
  26. PACLITAXEL [Concomitant]
     Indication: BREAST CANCER METASTATIC
     Route: 065
     Dates: start: 20050518
  27. DOXORUBICIN [Concomitant]
     Indication: BREAST CANCER METASTATIC
     Route: 065
     Dates: start: 20051025
  28. VINORELBINE [Concomitant]
     Indication: BREAST CANCER METASTATIC
     Route: 065
     Dates: start: 20060130
  29. VINORELBINE [Concomitant]
     Route: 065
     Dates: start: 20090505
  30. LETROZOLE [Concomitant]
     Indication: BREAST CANCER METASTATIC
     Route: 065
     Dates: start: 20090209
  31. LETROZOLE [Concomitant]
     Route: 065
     Dates: start: 20120423
  32. CARBOPLATIN [Concomitant]
     Indication: BREAST CANCER METASTATIC
     Route: 065
     Dates: start: 20130304
  33. ADRIAMYCIN [Concomitant]
     Route: 065
     Dates: start: 20010809
  34. CYCLOPHOSPHAMIDE [Concomitant]
     Route: 065
     Dates: start: 20011206
  35. TYKERB [Concomitant]

REACTIONS (2)
  - Disease progression [Unknown]
  - Pain [Unknown]
